FAERS Safety Report 6127627-3 (Version None)
Quarter: 2009Q1

REPORT INFORMATION
  Report Type: 
  Country: None (occurrence: None)
  Receive Date: 20090323
  Receipt Date: 20090311
  Transmission Date: 20090719
  Serious: Yes (Hospitalization, Other)
  Sender: FDA-Public Use
  Company Number: US-ROCHE-521777

PATIENT
  Sex: Female
  Weight: 52.2 kg

DRUGS (1)
  1. ACCUTANE [Suspect]
     Dosage: THE PATIENT TOOK 80 MG PER DAY EVERY FOURTH DAY.
     Route: 048
     Dates: start: 19910129, end: 19910228

REACTIONS (13)
  - ANAEMIA [None]
  - ANXIETY [None]
  - ARTHRITIS [None]
  - COLITIS [None]
  - COLITIS ULCERATIVE [None]
  - DEHYDRATION [None]
  - DEPRESSION [None]
  - INFLAMMATORY BOWEL DISEASE [None]
  - OSTEOPENIA [None]
  - OSTEOPOROSIS [None]
  - ROAD TRAFFIC ACCIDENT [None]
  - STRESS [None]
  - VIRAL INFECTION [None]
